FAERS Safety Report 10076975 (Version 4)
Quarter: 2014Q2

REPORT INFORMATION
  Report Type: Report from Study
  Country: JP (occurrence: JP)
  Receive Date: 20140414
  Receipt Date: 20140603
  Transmission Date: 20141212
  Serious: Yes (Hospitalization, Other)
  Sender: FDA-Public Use
  Company Number: JP-OTSUKA-JP-2013-10385

PATIENT
  Age: 48 Year
  Sex: Female
  Weight: 53.2 kg

DRUGS (8)
  1. OPC-41061 [Suspect]
     Indication: CONGENITAL CYSTIC KIDNEY DISEASE
     Dosage: 60 MG MILLIGRAM(S), DAILY DOSE
     Route: 048
     Dates: start: 20120123, end: 20130205
  2. OPC-41061 [Suspect]
     Dosage: 60 MG MILLIGRAM(S), DAILY DOSE
     Route: 048
     Dates: start: 20130211, end: 20140313
  3. MICARDIS [Concomitant]
     Indication: HYPERTENSION
     Dosage: 40 MG MILLIGRAM(S), QD
     Route: 048
     Dates: start: 20121029
  4. CALBLOCK [Concomitant]
     Indication: HYPERTENSION
     Dosage: 16 MG MILLIGRAM(S), QD
     Route: 048
     Dates: start: 20121029
  5. FERROMIA [Concomitant]
     Indication: IRON DEFICIENCY ANAEMIA
     Dosage: 50 MG MILLIGRAM(S), QD
     Route: 048
     Dates: start: 20131028
  6. AZOPT [Concomitant]
     Indication: GLAUCOMA
     Dosage: QS, BID
     Route: 047
     Dates: start: 20101022
  7. TRAVATANZ [Concomitant]
     Indication: GLAUCOMA
     Dosage: QS, QD
     Route: 047
     Dates: start: 20100128
  8. COSOPT [Concomitant]
     Indication: GLAUCOMA
     Dosage: QS, BID
     Route: 047
     Dates: start: 20130219

REACTIONS (3)
  - Renal cyst ruptured [Recovered/Resolved]
  - Ovarian cancer [Recovering/Resolving]
  - Uterine cancer [Recovering/Resolving]
